FAERS Safety Report 16426390 (Version 2)
Quarter: 2019Q4

REPORT INFORMATION
  Report Type: Report from Study
  Country: CA (occurrence: CA)
  Receive Date: 20190613
  Receipt Date: 20191226
  Transmission Date: 20200122
  Serious: Yes (Hospitalization)
  Sender: FDA-Public Use
  Company Number: CA-JNJFOC-20190616538

PATIENT
  Age: 72 Year
  Sex: Male
  Weight: 69.4 kg

DRUGS (1)
  1. REMICADE [Suspect]
     Active Substance: INFLIXIMAB
     Indication: ANKYLOSING SPONDYLITIS
     Route: 042

REACTIONS (2)
  - Renal injury [Recovered/Resolved]
  - Transurethral prostatectomy [Recovered/Resolved]

NARRATIVE: CASE EVENT DATE: 20190506
